FAERS Safety Report 24710488 (Version 2)
Quarter: 2025Q3

REPORT INFORMATION
  Report Type: Spontaneous
  Country: US (occurrence: US)
  Receive Date: 20241209
  Receipt Date: 20250803
  Transmission Date: 20251021
  Serious: Yes (Other)
  Sender: ALEXION PHARMACEUTICALS
  Company Number: US-ASTRAZENECA-24US0057411

PATIENT
  Age: 66 Year
  Sex: Male
  Weight: 85.73 kg

DRUGS (9)
  1. LYNPARZA [Suspect]
     Active Substance: OLAPARIB
     Route: 065
  2. VUDALIMAB [Concomitant]
     Active Substance: VUDALIMAB
  3. DOCETAXEL [Suspect]
     Active Substance: DOCETAXEL
  4. DULOXETINE [Concomitant]
     Active Substance: DULOXETINE
     Route: 065
  5. GABAPENTIN [Concomitant]
     Active Substance: GABAPENTIN
     Route: 065
  6. DECADRON [Concomitant]
     Active Substance: DEXAMETHASONE
     Route: 065
  7. REVATIO [Concomitant]
     Active Substance: SILDENAFIL CITRATE
     Route: 065
  8. TAMSULOSIN [Concomitant]
     Active Substance: TAMSULOSIN
     Route: 065
  9. Best choice dual action acetaminophen and ibuprofen [Concomitant]
     Route: 065

REACTIONS (15)
  - Neutrophil count decreased [Recovered/Resolved]
  - Neuropathy peripheral [Unknown]
  - Hypokalaemia [Unknown]
  - Anaemia [Unknown]
  - Myalgia [Unknown]
  - Weight decreased [Unknown]
  - Blood lactate dehydrogenase increased [Unknown]
  - Infusion related reaction [Unknown]
  - Pruritus [Unknown]
  - White blood cell count decreased [Unknown]
  - Neutrophil count decreased [Unknown]
  - Platelet count decreased [Unknown]
  - Peripheral sensory neuropathy [Unknown]
  - Peroneal nerve palsy [Unknown]
  - Cellulitis [Unknown]

NARRATIVE: CASE EVENT DATE: 20230817
